FAERS Safety Report 6659869-2 (Version None)
Quarter: 2010Q1

REPORT INFORMATION
  Report Type: 
  Country: None (occurrence: None)
  Receive Date: 20100330
  Receipt Date: 20100330
  Transmission Date: 20100710
  Serious: Yes (Other)
  Sender: FDA-Public Use
  Company Number: None

PATIENT
  Sex: Female
  Weight: 50.8029 kg

DRUGS (1)
  1. ARMOUR THYROID 30MG TABLET FOR FOREST PHARM [Suspect]
     Indication: HYPOTHYROIDISM
     Dosage: 30MG 1 TABLET EVERY DAY
     Dates: start: 20100306, end: 20100312

REACTIONS (7)
  - FATIGUE [None]
  - HEADACHE [None]
  - HYPERHIDROSIS [None]
  - INSOMNIA [None]
  - MALAISE [None]
  - NERVOUSNESS [None]
  - PERIPHERAL COLDNESS [None]
